FAERS Safety Report 5825610-6 (Version None)
Quarter: 2008Q3

REPORT INFORMATION
  Report Type: 
  Country: None (occurrence: None)
  Receive Date: 20080729
  Receipt Date: 20080724
  Transmission Date: 20090109
  Serious: Yes (Death)
  Sender: FDA-Public Use
  Company Number: A0739831A

PATIENT
  Age: 79 Year
  Sex: Male
  Weight: 48 kg

DRUGS (3)
  1. SERETIDE [Suspect]
     Route: 055
     Dates: start: 20080605, end: 20080716
  2. SPIRIVA [Concomitant]
     Dates: start: 20080605, end: 20080716
  3. ACETYLCYSTEINE [Concomitant]
     Dates: start: 20080605, end: 20080716

REACTIONS (1)
  - DEATH [None]
